FAERS Safety Report 9176711 (Version 1)
Quarter: 2013Q1

REPORT INFORMATION
  Report Type: Spontaneous
  Country: GB (occurrence: GB)
  Receive Date: 20130321
  Receipt Date: 20130321
  Transmission Date: 20140127
  Serious: Yes (Death)
  Sender: FDA-Public Use
  Company Number: GB-MPIJNJ-2013-02051

PATIENT
  Sex: 0

DRUGS (1)
  1. VELCADE [Suspect]
     Indication: PLASMA CELL MYELOMA
     Dosage: UNK
     Dates: start: 20121130, end: 20130201

REACTIONS (2)
  - Death [Fatal]
  - Drug ineffective [Unknown]
